FAERS Safety Report 20460603 (Version 1)
Quarter: 2022Q1

REPORT INFORMATION
  Report Type: Spontaneous
  Country: US (occurrence: US)
  Receive Date: 20220211
  Receipt Date: 20220211
  Transmission Date: 20220423
  Serious: No
  Sender: FDA-Public Use
  Company Number: US-ENDO PHARMACEUTICALS INC-2021-012415

PATIENT
  Age: 72 Year
  Sex: Male
  Weight: 88.435 kg

DRUGS (5)
  1. FORTESTA [Suspect]
     Active Substance: TESTOSTERONE
     Indication: Hypogonadism
     Dosage: UNK UNKNOWN, UNKNOWN
     Route: 065
  2. UNSPECIFIED INGREDIENT [Concomitant]
     Active Substance: UNSPECIFIED INGREDIENT
     Indication: Blood cholesterol increased
     Dosage: UNK UNKNOWN, UNKNOWN
     Route: 065
  3. UNSPECIFIED INGREDIENT [Concomitant]
     Active Substance: UNSPECIFIED INGREDIENT
     Indication: Hypertension
  4. Cholesterol lowering medications [Concomitant]
     Indication: Blood cholesterol increased
     Dosage: UNK UNKNOWN, UNKNOWN
     Route: 065
  5. Cholesterol lowering medications [Concomitant]
     Indication: Hypertension

REACTIONS (3)
  - Application site warmth [Recovering/Resolving]
  - Application site erythema [Recovering/Resolving]
  - Application site irritation [Recovering/Resolving]

NARRATIVE: CASE EVENT DATE: 20211001
